FAERS Safety Report 12183654 (Version 1)
Quarter: 2016Q1

REPORT INFORMATION
  Report Type: Spontaneous
  Country: US (occurrence: US)
  Receive Date: 20160316
  Receipt Date: 20160316
  Transmission Date: 20160526
  Serious: Yes (Other)
  Sender: FDA-Public Use
  Company Number: US-PFIZER INC-2016148920

PATIENT

DRUGS (1)
  1. LATANOPROST. [Suspect]
     Active Substance: LATANOPROST
     Dosage: UNK

REACTIONS (5)
  - Normal tension glaucoma [Unknown]
  - Cough [Unknown]
  - Dry eye [Unknown]
  - Ocular hyperaemia [Unknown]
  - Erythema of eyelid [Unknown]
